FAERS Safety Report 7296706-X (Version None)
Quarter: 2011Q1

REPORT INFORMATION
  Report Type: 
  Country: None (occurrence: None)
  Receive Date: 20110204
  Receipt Date: 20110118
  Transmission Date: 20110831
  Serious: Yes (Life-Threatening, Hospitalization)
  Sender: FDA-Public Use
  Company Number: 2011-00088

PATIENT
  Age: 41 Year
  Sex: Female
  Weight: 145.151 kg

DRUGS (6)
  1. BUPROPION [Concomitant]
  2. ATENOLOL [Concomitant]
  3. ADDERALL 10 [Concomitant]
  4. LAMICTAL [Concomitant]
  5. LISINOPRIL AND HYDROCHLOROTHIAZIDE [Suspect]
     Indication: HYPERTENSION
     Dosage: (1 IN 1 D), PER ORAL
     Route: 048
     Dates: start: 20100725, end: 20110111
  6. FLUOXETINE [Concomitant]

REACTIONS (9)
  - OVARIAN DISORDER [None]
  - HYPERHIDROSIS [None]
  - URINE OUTPUT DECREASED [None]
  - RENAL FAILURE [None]
  - CARDIAC DISORDER [None]
  - ABDOMINAL PAIN LOWER [None]
  - FLANK PAIN [None]
  - DYSURIA [None]
  - DEPRESSED LEVEL OF CONSCIOUSNESS [None]
